FAERS Safety Report 18330342 (Version 1)
Quarter: 2020Q3

REPORT INFORMATION
  Report Type: Spontaneous
  Country: US (occurrence: US)
  Receive Date: 20200930
  Receipt Date: 20200930
  Transmission Date: 20201103
  Serious: No
  Sender: FDA-Public Use
  Company Number: US-SA-2020SA264726

PATIENT

DRUGS (1)
  1. DUPIXENT [Suspect]
     Active Substance: DUPILUMAB
     Indication: DERMATITIS
     Dosage: 300 MG, QOW
     Route: 058
     Dates: start: 20200903

REACTIONS (3)
  - Nausea [Recovering/Resolving]
  - Paraesthesia [Recovering/Resolving]
  - Eyelid skin dryness [Recovering/Resolving]

NARRATIVE: CASE EVENT DATE: 202009
